FAERS Safety Report 8090666-X (Version None)
Quarter: 2012Q1

REPORT INFORMATION
  Report Type: 
  Country: None (occurrence: None)
  Receive Date: 20120129
  Receipt Date: 20111207
  Transmission Date: 20120608
  Serious: Yes (Hospitalization)
  Sender: FDA-Public Use
  Company Number: US-ABBOTT-11P-163-0881726-00

PATIENT
  Sex: Female
  Weight: 90.8 kg

DRUGS (16)
  1. HUMIRA [Suspect]
     Indication: RHEUMATOID ARTHRITIS
     Dates: start: 20050101, end: 20110101
  2. LISINOPRIL [Concomitant]
     Indication: BLOOD PRESSURE
  3. ASPIRIN [Concomitant]
     Indication: PRODUCT USED FOR UNKNOWN INDICATION
  4. PREDNISONE TAB [Concomitant]
     Indication: RHEUMATOID ARTHRITIS
     Dosage: WEENING DOWN
  5. PLAVIX [Concomitant]
     Indication: PRODUCT USED FOR UNKNOWN INDICATION
  6. METHADONE HCL [Concomitant]
  7. XANAX [Concomitant]
     Indication: INSOMNIA
  8. NOVOLOG [Concomitant]
     Indication: DIABETES MELLITUS
  9. EFFEXOR [Concomitant]
     Indication: DEPRESSION
  10. LEVEMIR [Concomitant]
     Indication: DIABETES MELLITUS
  11. HYDROCHLOROTHIAZIDE [Concomitant]
     Indication: BLOOD PRESSURE
  12. METOPROLOL TARTRATE [Concomitant]
     Indication: BLOOD PRESSURE
  13. OXYCODONE HCL [Concomitant]
  14. METHADONE HCL [Concomitant]
     Indication: RHEUMATOID ARTHRITIS
  15. METFFORMIN HYDROCHLORIDE [Concomitant]
     Indication: DIABETES MELLITUS
  16. OXYCODONE HCL [Concomitant]
     Indication: BREAKTHROUGH PAIN

REACTIONS (10)
  - PNEUMONIA FUNGAL [None]
  - PYREXIA [None]
  - WHITE BLOOD CELL COUNT INCREASED [None]
  - DEHYDRATION [None]
  - CHEST X-RAY ABNORMAL [None]
  - NODULE [None]
  - FUNGAL TEST POSITIVE [None]
  - DECREASED APPETITE [None]
  - CHROMATURIA [None]
  - MALAISE [None]
